FAERS Safety Report 17229774 (Version 7)
Quarter: 2020Q2

REPORT INFORMATION
  Report Type: Report from Study
  Country: US (occurrence: US)
  Receive Date: 20200103
  Receipt Date: 20200625
  Transmission Date: 20200713
  Serious: Yes (Other)
  Sender: FDA-Public Use
  Company Number: NVSC2019US084646

PATIENT
  Sex: Male

DRUGS (1)
  1. ENTRESTO [Suspect]
     Active Substance: SACUBITRIL\VALSARTAN
     Indication: CARDIAC FAILURE
     Dosage: UNK
     Route: 065

REACTIONS (10)
  - Ageusia [Recovered/Resolved]
  - Arthropathy [Unknown]
  - Diarrhoea [Recovered/Resolved]
  - Spondylitis [Unknown]
  - Coronavirus test positive [Recovering/Resolving]
  - Depression [Unknown]
  - Weight decreased [Unknown]
  - Arteriosclerosis [Unknown]
  - Decreased appetite [Recovered/Resolved]
  - Arthritis [Unknown]
